FAERS Safety Report 19158723 (Version 2)
Quarter: 2021Q2

REPORT INFORMATION
  Report Type: Spontaneous
  Country: PT (occurrence: PT)
  Receive Date: 20210420
  Receipt Date: 20210505
  Transmission Date: 20210717
  Serious: Yes (Hospitalization, Other)
  Sender: FDA-Public Use
  Company Number: PT-SA-2021SA121561

PATIENT
  Sex: Female
  Weight: 85 kg

DRUGS (1)
  1. LOVENOX [Suspect]
     Active Substance: ENOXAPARIN SODIUM
     Dosage: 60 MG, QD
     Route: 058

REACTIONS (8)
  - Dysstasia [Recovered/Resolved]
  - Malaise [Recovered/Resolved]
  - Internal haemorrhage [Recovered/Resolved]
  - Syncope [Recovered/Resolved]
  - Haemoglobin decreased [Recovered/Resolved]
  - Product administered at inappropriate site [Unknown]
  - Nausea [Recovered/Resolved]
  - Drug hypersensitivity [Recovered/Resolved]
